FAERS Safety Report 11921759 (Version 3)
Quarter: 2016Q3

REPORT INFORMATION
  Report Type: Report from Study
  Country: BR (occurrence: BR)
  Receive Date: 20160115
  Receipt Date: 20160705
  Transmission Date: 20161109
  Serious: Yes (Other)
  Sender: FDA-Public Use
  Company Number: PHHY2016BR002923

PATIENT
  Age: 86 Year
  Sex: Female
  Weight: 54 kg

DRUGS (3)
  1. EXELON PATCH [Suspect]
     Active Substance: RIVASTIGMINE
     Indication: AMNESIA
     Dosage: PATCH 5 (CM2)
     Route: 062
     Dates: start: 201507
  2. EXELON PATCH [Suspect]
     Active Substance: RIVASTIGMINE
     Indication: MEMORY IMPAIRMENT
     Dosage: UNK, 2 YEARS AGO
     Route: 062
  3. EXELON PATCH [Suspect]
     Active Substance: RIVASTIGMINE
     Dosage: PATCH 10 (CM2)
     Route: 062
     Dates: start: 201508

REACTIONS (22)
  - Venous occlusion [Unknown]
  - Hypokinesia [Unknown]
  - Incorrect drug administration duration [Unknown]
  - Fear [Unknown]
  - Helplessness [Recovered/Resolved]
  - Malaise [Unknown]
  - Body height decreased [Unknown]
  - Nervous system disorder [Recovering/Resolving]
  - Fracture [Unknown]
  - Pain [Unknown]
  - Vertebral wedging [Unknown]
  - Memory impairment [Not Recovered/Not Resolved]
  - Breast cancer metastatic [Unknown]
  - Pelvic fracture [Unknown]
  - Metastases to lung [Not Recovered/Not Resolved]
  - Psychiatric symptom [Recovering/Resolving]
  - Nervousness [Recovered/Resolved]
  - Fall [Unknown]
  - Amnesia [Not Recovered/Not Resolved]
  - Pelvic pain [Recovering/Resolving]
  - Crying [Recovered/Resolved]
  - Weight decreased [Unknown]

NARRATIVE: CASE EVENT DATE: 201506
